APPROVED DRUG PRODUCT: TINIDAZOLE
Active Ingredient: TINIDAZOLE
Strength: 500MG
Dosage Form/Route: TABLET;ORAL
Application: A202489 | Product #002 | TE Code: AB
Applicant: THINQ PHARMA-CRO PRIVATE LTD
Approved: Oct 9, 2013 | RLD: No | RS: No | Type: RX